FAERS Safety Report 8801888 (Version 1)
Quarter: 2012Q4

REPORT INFORMATION
  Report Type: 
  Country: ES (occurrence: ES)
  Receive Date: 20120921
  Receipt Date: 20120921
  Transmission Date: 20130627
  Serious: Yes (Other)
  Sender: FDA-Public Use
  Company Number: ES-PFIZER INC-2012230194

PATIENT
  Age: 5 Year
  Sex: Male
  Weight: 11 kg

DRUGS (1)
  1. GENOTONORM [Suspect]
     Indication: GROWTH HORMONE DEFICIENCY
     Dosage: 0.4 mg, 1x/day
     Route: 058
     Dates: start: 20120706, end: 20120802

REACTIONS (1)
  - Liver transplant rejection [Unknown]
